FAERS Safety Report 16243404 (Version 1)
Quarter: 2019Q2

REPORT INFORMATION
  Report Type: Spontaneous
  Country: US (occurrence: US)
  Receive Date: 20190426
  Receipt Date: 20190426
  Transmission Date: 20190711
  Serious: Yes (Other)
  Sender: FDA-Public Use
  Company Number: US-UNITED THERAPEUTICS-UNT-2019-006830

PATIENT
  Age: 83 Year
  Sex: Female
  Weight: 89.8 kg

DRUGS (3)
  1. REVATIO [Concomitant]
     Active Substance: SILDENAFIL CITRATE
     Indication: PULMONARY ARTERIAL HYPERTENSION
     Dosage: 40 MG, TID
     Route: 048
     Dates: start: 2007
  2. REVATIO [Concomitant]
     Active Substance: SILDENAFIL CITRATE
     Dosage: 2 TAB, TID
     Route: 048
     Dates: start: 200801
  3. REMODULIN [Suspect]
     Active Substance: TREPROSTINIL
     Indication: PULMONARY ARTERIAL HYPERTENSION
     Dosage: 0.084 ?G/KG, CONTINUING
     Route: 041
     Dates: start: 20131010

REACTIONS (8)
  - Pain in extremity [Unknown]
  - Therapy non-responder [Unknown]
  - Cardiac failure [Unknown]
  - Hypoaesthesia [Unknown]
  - Diarrhoea [Unknown]
  - Faeces discoloured [Recovered/Resolved]
  - Oedema peripheral [Unknown]
  - Herpes zoster [Unknown]

NARRATIVE: CASE EVENT DATE: 201507
